FAERS Safety Report 10640177 (Version 1)
Quarter: 2014Q4

REPORT INFORMATION
  Report Type: Spontaneous
  Country: US (occurrence: None)
  Receive Date: 20141208
  Receipt Date: 20141208
  Transmission Date: 20150529
  Serious: No
  Sender: FDA-Public Use
  Company Number: None

PATIENT
  Age: 56 Year
  Sex: Female
  Weight: 74.84 kg

DRUGS (1)
  1. MICONAZOLE 1 [Suspect]
     Active Substance: MICONAZOLE NITRATE
     Indication: VULVOVAGINAL MYCOTIC INFECTION
     Dates: start: 20141204, end: 20141205

REACTIONS (4)
  - Application site pain [None]
  - Application site haemorrhage [None]
  - Application site swelling [None]
  - Application site pruritus [None]

NARRATIVE: CASE EVENT DATE: 20141205
